FAERS Safety Report 23740498 (Version 1)
Quarter: 2024Q2

REPORT INFORMATION
  Report Type: Spontaneous
  Country: US (occurrence: US)
  Receive Date: 20240415
  Receipt Date: 20240415
  Transmission Date: 20240716
  Serious: Yes (Other)
  Sender: FDA-Public Use
  Company Number: US-MLMSERVICE-20240328-4921530-1

PATIENT

DRUGS (2)
  1. METRONIDAZOLE [Suspect]
     Active Substance: METRONIDAZOLE
     Indication: Trichomoniasis
     Dosage: UNK (YEARS EARLIER)
     Route: 065
  2. CLINDAMYCIN HYDROCHLORIDE [Suspect]
     Active Substance: CLINDAMYCIN HYDROCHLORIDE
     Indication: Trichomoniasis
     Dosage: UNK
     Route: 065

REACTIONS (2)
  - Generalised bullous fixed drug eruption [Unknown]
  - Treatment failure [Unknown]
